FAERS Safety Report 13179974 (Version 3)
Quarter: 2017Q1

REPORT INFORMATION
  Report Type: Spontaneous
  Country: US (occurrence: US)
  Receive Date: 20170202
  Receipt Date: 20170302
  Transmission Date: 20170428
  Serious: Yes (Hospitalization)
  Sender: FDA-Public Use
  Company Number: US-VERTEX PHARMACEUTICALS-2017-000563

PATIENT
  Age: 11 Year
  Sex: Male
  Weight: 40 kg

DRUGS (4)
  1. ORKAMBI [Suspect]
     Active Substance: IVACAFTOR\LUMACAFTOR
     Indication: CYSTIC FIBROSIS
     Dosage: 100-125 MG, BID
     Route: 048
     Dates: start: 20170109
  2. BETHKIS [Suspect]
     Active Substance: TOBRAMYCIN
     Indication: CYSTIC FIBROSIS
     Dosage: 300MG/4ML, BID
     Route: 055
     Dates: start: 20150122
  3. MULTIVITAMINS [Concomitant]
     Active Substance: VITAMINS
  4. TOBI [Concomitant]
     Active Substance: TOBRAMYCIN

REACTIONS (2)
  - Infective pulmonary exacerbation of cystic fibrosis [Unknown]
  - Asthma [Recovering/Resolving]

NARRATIVE: CASE EVENT DATE: 201701
